FAERS Safety Report 4575494-1 (Version None)
Quarter: 2005Q1

REPORT INFORMATION
  Report Type: 
  Country: None (occurrence: None)
  Receive Date: 20050128
  Receipt Date: 20050128
  Transmission Date: 20050727
  Serious: Yes (Other)
  Sender: FDA-Public Use
  Company Number: None

PATIENT
  Sex: Female

DRUGS (2)
  1. LYMPHAZURIN [Suspect]
     Indication: BIOPSY LYMPH GLAND
     Dosage: 5CC   ONCE   INTRATUMOR
  2. LYMPHAZURIN [Suspect]
     Indication: BREAST CANCER
     Dosage: 5CC   ONCE   INTRATUMOR

REACTIONS (2)
  - SKIN DISCOLOURATION [None]
  - URTICARIA GENERALISED [None]
